FAERS Safety Report 16104193 (Version 8)
Quarter: 2019Q2

REPORT INFORMATION
  Report Type: Spontaneous
  Country: US (occurrence: US)
  Receive Date: 20190322
  Receipt Date: 20190621
  Transmission Date: 20190711
  Serious: No
  Sender: FDA-Public Use
  Company Number: US-PFIZER INC-2019115234

PATIENT
  Age: 71 Year
  Sex: Female
  Weight: 56.25 kg

DRUGS (5)
  1. PREMPRO [Suspect]
     Active Substance: ESTROGENS, CONJUGATED\MEDROXYPROGESTERONE ACETATE
     Dosage: 1 DF, 1X/DAY
     Dates: start: 2019
  2. PREMPRO [Suspect]
     Active Substance: ESTROGENS, CONJUGATED\MEDROXYPROGESTERONE ACETATE
     Dosage: 0.625 MG, 2X/DAY
  3. PREMPRO [Suspect]
     Active Substance: ESTROGENS, CONJUGATED\MEDROXYPROGESTERONE ACETATE
     Dosage: 1 DF, 2X/DAY
  4. PREMPRO [Suspect]
     Active Substance: ESTROGENS, CONJUGATED\MEDROXYPROGESTERONE ACETATE
     Dosage: 2 DF, DAILY
     Route: 048
     Dates: start: 201902
  5. PREMPRO [Suspect]
     Active Substance: ESTROGENS, CONJUGATED\MEDROXYPROGESTERONE ACETATE
     Dosage: 1.25 MG, DAILY

REACTIONS (5)
  - Rash [Unknown]
  - Asthenia [Unknown]
  - Malaise [Unknown]
  - Off label use [Unknown]
  - Dry skin [Unknown]
